FAERS Safety Report 6303694-9 (Version None)
Quarter: 2009Q3

REPORT INFORMATION
  Report Type: 
  Country: None (occurrence: None)
  Receive Date: 20090807
  Receipt Date: 20090807
  Transmission Date: 20100115
  Serious: Yes (Hospitalization)
  Sender: FDA-Public Use
  Company Number: None

PATIENT
  Age: 75 Year
  Sex: Female
  Weight: 70.76 kg

DRUGS (1)
  1. TRILIPIX [Suspect]
     Indication: HYPERTRIGLYCERIDAEMIA
     Dosage: 135 MG, DAILY, PO
     Route: 048
     Dates: start: 20090511, end: 20090622

REACTIONS (8)
  - AUTOIMMUNE HEPATITIS [None]
  - BILIARY TRACT DISORDER [None]
  - CHRONIC HEPATITIS [None]
  - HEPATIC CIRRHOSIS [None]
  - HEPATITIS VIRAL [None]
  - LIVER INJURY [None]
  - NIGHT SWEATS [None]
  - URTICARIA [None]
